FAERS Safety Report 21437347 (Version 2)
Quarter: 2022Q4

REPORT INFORMATION
  Report Type: Spontaneous
  Country: US (occurrence: US)
  Receive Date: 20221010
  Receipt Date: 20221116
  Transmission Date: 20230113
  Serious: No
  Sender: FDA-Public Use
  Company Number: US-BIOGEN-2022BI01160772

PATIENT
  Age: 23 Year
  Sex: Female

DRUGS (2)
  1. SPINRAZA [Suspect]
     Active Substance: NUSINERSEN
     Indication: Spinal muscular atrophy
     Dosage: FIRST 3 DOSES ARE ADMINISTERED AT 14-DAY INTERVALS
     Route: 050
     Dates: start: 2019
  2. SPINRAZA [Suspect]
     Active Substance: NUSINERSEN
     Dosage: FOURTH DOSE ADMINISTERED 30 DAYS AFTER THE THIRD DOSE
     Route: 050

REACTIONS (5)
  - Muscle twitching [Unknown]
  - Asthenia [Unknown]
  - Fatigue [Unknown]
  - Hypersomnia [Unknown]
  - Off label use [Unknown]

NARRATIVE: CASE EVENT DATE: 20190101
